FAERS Safety Report 13456714 (Version 2)
Quarter: 2018Q3

REPORT INFORMATION
  Report Type: Report from Study
  Country: US (occurrence: US)
  Receive Date: 20170418
  Receipt Date: 20180720
  Transmission Date: 20181010
  Serious: Yes (Other)
  Sender: FDA-Public Use
  Company Number: US-TAKEDA-2017TUS007960

PATIENT
  Age: 59 Year
  Sex: Male
  Weight: 74.83 kg

DRUGS (1)
  1. VEDOLIZUMAB [Suspect]
     Active Substance: VEDOLIZUMAB
     Indication: POUCHITIS
     Dosage: UNK
     Route: 042
     Dates: start: 20150309, end: 20170904

REACTIONS (8)
  - Spinal operation [Unknown]
  - Fatigue [Not Recovered/Not Resolved]
  - Off label use [Unknown]
  - Knee operation [Unknown]
  - Arthritis [Not Recovered/Not Resolved]
  - Fall [Unknown]
  - Limb operation [Unknown]
  - Sinusitis [Not Recovered/Not Resolved]

NARRATIVE: CASE EVENT DATE: 20150309
